FAERS Safety Report 8163019-3 (Version None)
Quarter: 2012Q1

REPORT INFORMATION
  Report Type: 
  Country: None (occurrence: None)
  Receive Date: 20120224
  Receipt Date: 20120221
  Transmission Date: 20120608
  Serious: Yes (Life-Threatening)
  Sender: FDA-Public Use
  Company Number: US-BAYER-2011-077993

PATIENT
  Age: 35 Year
  Sex: Female

DRUGS (6)
  1. YASMIN [Suspect]
  2. DROSPIRENONE AND ETHINYL ESTRADIOL [Suspect]
  3. YAZ [Suspect]
  4. OXYBUTYNIN [Concomitant]
  5. COPAXONE [Concomitant]
  6. NEXIUM [Concomitant]

REACTIONS (6)
  - INJURY [None]
  - PAIN [None]
  - ANHEDONIA [None]
  - DEEP VEIN THROMBOSIS [None]
  - ANXIETY [None]
  - THROMBOSIS [None]
